FAERS Safety Report 8792746 (Version 2)
Quarter: 2012Q4

REPORT INFORMATION
  Report Type: 
  Country: JP (occurrence: JP)
  Receive Date: 20120918
  Receipt Date: 20121114
  Transmission Date: 20130627
  Serious: Yes (Hospitalization)
  Sender: FDA-Public Use
  Company Number: JP-GLAXOSMITHKLINE-B0818513A

PATIENT
  Age: 28 Year
  Sex: Male

DRUGS (5)
  1. ZINNAT [Suspect]
     Indication: PHARYNGITIS
     Dosage: 250MG Three times per day
     Route: 048
     Dates: start: 20120716, end: 20120719
  2. CALONAL [Concomitant]
     Indication: PYREXIA
     Dosage: 300MG Three times per day
     Route: 048
     Dates: start: 20120716, end: 20120723
  3. MUCOSTA [Concomitant]
     Indication: PYREXIA
     Dosage: 100MG Three times per day
     Route: 048
     Dates: start: 20120716, end: 20120720
  4. SULBACILLIN [Concomitant]
     Indication: PHARYNGITIS
     Dosage: 1500MG Four times per day
     Route: 042
     Dates: start: 20120718, end: 20120719
  5. PASIL [Concomitant]
     Indication: PHARYNGITIS
     Dosage: 500MG Twice per day
     Route: 042
     Dates: start: 20120719, end: 20120721

REACTIONS (10)
  - Stevens-Johnson syndrome [Recovered/Resolved]
  - Pyrexia [Unknown]
  - Rash [Unknown]
  - Erythema multiforme [Unknown]
  - Generalised erythema [Unknown]
  - Hyperthermia [Unknown]
  - Enanthema [Unknown]
  - Rash [Unknown]
  - Drug eruption [Unknown]
  - Skin exfoliation [Unknown]
